FAERS Safety Report 19171634 (Version 1)
Quarter: 2021Q2

REPORT INFORMATION
  Report Type: Spontaneous
  Country: US (occurrence: US)
  Receive Date: 20210423
  Receipt Date: 20210423
  Transmission Date: 20210717
  Serious: No
  Sender: FDA-Public Use
  Company Number: US-SA-2021SA130217

PATIENT
  Age: 48 Year
  Sex: Male

DRUGS (1)
  1. DUPIXENT [Suspect]
     Active Substance: DUPILUMAB
     Indication: CHRONIC SINUSITIS
     Dosage: UNK
     Route: 058
     Dates: start: 20201110

REACTIONS (1)
  - Drug ineffective for unapproved indication [Unknown]
